FAERS Safety Report 4986365-0 (Version None)
Quarter: 2006Q2

REPORT INFORMATION
  Report Type: 
  Country: None (occurrence: None)
  Receive Date: 20060428
  Receipt Date: 20060228
  Transmission Date: 20061013
  Serious: Yes (Other)
  Sender: FDA-Public Use
  Company Number: FR-GLAXOSMITHKLINE-B0413805A

PATIENT
  Age: 13 Year
  Sex: Female

DRUGS (4)
  1. SERETIDE DISKUS [Suspect]
     Indication: ASTHMA
     Route: 055
     Dates: start: 20020101, end: 20060201
  2. FLIXONASE [Concomitant]
     Dosage: 100MCG AT NIGHT
     Route: 045
  3. CETIRIZINE HCL [Concomitant]
     Route: 048
  4. TARDYFERON [Concomitant]
     Route: 048

REACTIONS (10)
  - ACNE [None]
  - ANAEMIA [None]
  - ARTHRALGIA [None]
  - FATIGUE [None]
  - GENERAL PHYSICAL HEALTH DETERIORATION [None]
  - MYALGIA [None]
  - OEDEMA [None]
  - PYREXIA [None]
  - SYSTEMIC LUPUS ERYTHEMATOSUS [None]
  - TRANSAMINASES INCREASED [None]
